FAERS Safety Report 7088434-0 (Version None)
Quarter: 2010Q4

REPORT INFORMATION
  Report Type: 
  Country: None (occurrence: None)
  Receive Date: 20101108
  Receipt Date: 20101028
  Transmission Date: 20110411
  Serious: Yes (Other)
  Sender: FDA-Public Use
  Company Number: BR-ROCHE-737598

PATIENT
  Sex: Male
  Weight: 68 kg

DRUGS (1)
  1. ROACUTAN [Suspect]
     Indication: ACNE
     Route: 048
     Dates: start: 20100916, end: 20101017

REACTIONS (2)
  - ECCHYMOSIS [None]
  - PROTHROMBIN TIME PROLONGED [None]
